FAERS Safety Report 10181763 (Version 4)
Quarter: 2014Q4

REPORT INFORMATION
  Report Type: Spontaneous
  Country: US (occurrence: DE)
  Receive Date: 20140519
  Receipt Date: 20141121
  Transmission Date: 20150528
  Serious: Yes (Life-Threatening, Hospitalization)
  Sender: FDA-Public Use
  Company Number: DE-FRI-1000067442

PATIENT
  Age: 72 Year
  Sex: Male
  Weight: 75 kg

DRUGS (1)
  1. ROFLUMILAST [Suspect]
     Active Substance: ROFLUMILAST
     Indication: CHRONIC OBSTRUCTIVE PULMONARY DISEASE
     Dosage: 500 MCG
     Route: 048
     Dates: start: 20140304

REACTIONS (8)
  - Increased bronchial secretion [Not Recovered/Not Resolved]
  - Pneumonia [Recovering/Resolving]
  - Blood urine present [Unknown]
  - Gastrointestinal fungal infection [Unknown]
  - Dyspnoea [Not Recovered/Not Resolved]
  - Prostatic disorder [Unknown]
  - Bronchopneumonia [Unknown]
  - Weight decreased [Unknown]

NARRATIVE: CASE EVENT DATE: 20140508
